FAERS Safety Report 7180423-0 (Version None)
Quarter: 2010Q4

REPORT INFORMATION
  Report Type: 
  Country: None (occurrence: None)
  Receive Date: 20101221
  Receipt Date: 20101215
  Transmission Date: 20110411
  Serious: Yes (Hospitalization)
  Sender: FDA-Public Use
  Company Number: B0689738A

PATIENT
  Sex: Male

DRUGS (10)
  1. EPIVIR [Suspect]
     Indication: HIV INFECTION
     Dosage: 300MG PER DAY
     Route: 048
     Dates: start: 19990112, end: 20091228
  2. KALETRA [Suspect]
     Indication: HIV INFECTION
     Route: 048
     Dates: start: 20050113, end: 20070331
  3. KALETRA [Suspect]
     Route: 048
     Dates: start: 20070401, end: 20091228
  4. VIREAD [Suspect]
     Indication: HIV INFECTION
     Route: 048
     Dates: start: 20041118, end: 20091228
  5. EPZICOM [Concomitant]
     Indication: HIV INFECTION
     Dosage: 1IUAX PER DAY
     Route: 048
     Dates: start: 20091229
  6. ISENTRESS [Concomitant]
     Indication: HIV INFECTION
     Route: 048
     Dates: start: 20091229
  7. INTELENCE [Concomitant]
     Indication: HIV INFECTION
     Route: 048
     Dates: start: 20091229
  8. URSO 250 [Concomitant]
     Indication: LIVER DISORDER
     Dosage: 1800MG PER DAY
     Route: 048
     Dates: start: 20090401
  9. UNKNOWN DRUG [Concomitant]
     Indication: FACTOR VIII DEFICIENCY
     Dates: start: 20090401
  10. PEGINTERFERON ALFA-2B [Concomitant]
     Indication: HEPATITIS C
     Route: 058
     Dates: start: 20090401

REACTIONS (1)
  - HAEMORRHAGIC DIATHESIS [None]
